FAERS Safety Report 4467477-7 (Version None)
Quarter: 2004Q4

REPORT INFORMATION
  Report Type: 
  Country: None (occurrence: None)
  Receive Date: 20041006
  Receipt Date: 20041001
  Transmission Date: 20050328
  Serious: Yes (Other)
  Sender: FDA-Public Use
  Company Number: NZ-MERCK-0410NZL00005

PATIENT
  Age: 65 Year
  Sex: Female

DRUGS (6)
  1. ACETAMINOPHEN [Concomitant]
     Route: 048
  2. ESTROGENS (UNSPECIFIED) [Concomitant]
     Route: 048
  3. OMEPRAZOLE [Concomitant]
     Route: 048
  4. VIOXX [Suspect]
     Route: 048
     Dates: start: 20030101
  5. VIOXX [Suspect]
     Route: 048
     Dates: end: 20030401
  6. TRIAZOLAM [Concomitant]
     Route: 048

REACTIONS (1)
  - CEREBROVASCULAR ACCIDENT [None]
